FAERS Safety Report 14124079 (Version 5)
Quarter: 2017Q4

REPORT INFORMATION
  Report Type: Report from Study
  Country: US (occurrence: US)
  Receive Date: 20171025
  Receipt Date: 20171220
  Transmission Date: 20180321
  Serious: Yes (Death, Hospitalization, Other)
  Sender: FDA-Public Use
  Company Number: US-GILEAD-2017-0298794

PATIENT
  Age: 79 Year
  Sex: Male

DRUGS (4)
  1. ORENITRAM [Concomitant]
     Active Substance: TREPROSTINIL
  2. AMLODIPINE [Concomitant]
     Active Substance: AMLODIPINE BESYLATE
  3. AMBRISENTAN [Suspect]
     Active Substance: AMBRISENTAN
     Indication: PULMONARY ARTERIAL HYPERTENSION
     Dosage: 10 MG, QD
     Route: 048
     Dates: start: 20170823
  4. REVATIO [Concomitant]
     Active Substance: SILDENAFIL CITRATE
     Dosage: 20 MG, TID
     Route: 048

REACTIONS (8)
  - Renal impairment [Unknown]
  - Renal failure [Unknown]
  - Cardiac failure acute [Unknown]
  - Acute kidney injury [Fatal]
  - Terminal state [Not Recovered/Not Resolved]
  - Fluid retention [Unknown]
  - Pulmonary arterial hypertension [Unknown]
  - End stage renal disease [Not Recovered/Not Resolved]
